FAERS Safety Report 18695493 (Version 3)
Quarter: 2021Q1

REPORT INFORMATION
  Report Type: Spontaneous
  Country: US (occurrence: US)
  Receive Date: 20210104
  Receipt Date: 20210308
  Transmission Date: 20210419
  Serious: Yes (Death, Hospitalization)
  Sender: FDA-Public Use
  Company Number: US-NIPPON SHINYAKU-NIP-2020-000023

PATIENT

DRUGS (1)
  1. VILTOLARSEN. [Suspect]
     Active Substance: VILTOLARSEN
     Indication: DUCHENNE MUSCULAR DYSTROPHY
     Dosage: 4950 MILLIGRAM, QWK
     Route: 042
     Dates: start: 202011, end: 202012

REACTIONS (5)
  - SARS-CoV-2 test positive [Fatal]
  - Feeding disorder [Unknown]
  - Anxiety [Unknown]
  - Malaise [Unknown]
  - Sleep deficit [Unknown]

NARRATIVE: CASE EVENT DATE: 202012
